FAERS Safety Report 6678880-9 (Version None)
Quarter: 2010Q2

REPORT INFORMATION
  Report Type: 
  Country: None (occurrence: None)
  Receive Date: 20100413
  Receipt Date: 20100408
  Transmission Date: 20101027
  Serious: Yes (Other)
  Sender: FDA-Public Use
  Company Number: US-BRISTOL-MYERS SQUIBB COMPANY-15053846

PATIENT
  Age: 57 Year
  Sex: Female
  Weight: 111 kg

DRUGS (18)
  1. AVAPRO [Suspect]
     Indication: HYPERTENSION
     Dates: start: 20100401
  2. MAGNESIUM [Concomitant]
  3. FOLIC ACID [Concomitant]
  4. PLAVIX [Concomitant]
  5. PREDNISOLONE [Concomitant]
  6. NAMENDA [Concomitant]
  7. NEXIUM [Concomitant]
  8. HYDROXYCHLOROQUINE SULFATE [Concomitant]
  9. METHOTREXATE [Concomitant]
  10. TOPROL-XL [Concomitant]
  11. MOBIC [Concomitant]
  12. EFFEXOR [Concomitant]
  13. NITROGLYCERIN [Concomitant]
  14. MECLIZINE [Concomitant]
  15. OXYCONTIN [Concomitant]
     Dosage: OXYCONTIN 40, OXYCONTIN 30
  16. OXYCODONE [Concomitant]
  17. HYDROCODONE BITARTRATE [Concomitant]
  18. METHADONE HCL [Concomitant]

REACTIONS (2)
  - BLOOD GLUCOSE INCREASED [None]
  - HEART RATE INCREASED [None]
